FAERS Safety Report 7288248-2 (Version None)
Quarter: 2011Q1

REPORT INFORMATION
  Report Type: 
  Country: None (occurrence: None)
  Receive Date: 20110211
  Receipt Date: 20110202
  Transmission Date: 20110831
  Serious: Yes (Death)
  Sender: FDA-Public Use
  Company Number: MX-SANOFI-AVENTIS-2011SA007058

PATIENT
  Age: 68 Year
  Sex: Male

DRUGS (1)
  1. GLIMEPIRIDE [Suspect]
     Route: 048
     Dates: end: 20100101

REACTIONS (1)
  - RENAL CANCER [None]
